FAERS Safety Report 11079604 (Version 1)
Quarter: 2015Q2

REPORT INFORMATION
  Report Type: Spontaneous
  Country: US (occurrence: US)
  Receive Date: 20150430
  Receipt Date: 20150430
  Transmission Date: 20150821
  Serious: Yes (Other)
  Sender: FDA-Public Use
  Company Number: US-PFIZER INC-2015147662

PATIENT
  Age: 71 Year
  Sex: Female
  Weight: 88 kg

DRUGS (3)
  1. NORVASC [Suspect]
     Active Substance: AMLODIPINE BESYLATE
     Dosage: UNK
  2. BABY ASPIRIN [Concomitant]
     Active Substance: ASPIRIN
     Dosage: UNK
  3. FUROSEMIDE. [Concomitant]
     Active Substance: FUROSEMIDE
     Indication: DIURETIC THERAPY
     Dosage: UNK

REACTIONS (9)
  - Thyroid disorder [Unknown]
  - Blood pressure fluctuation [Unknown]
  - Weight increased [Unknown]
  - Aortic stenosis [Unknown]
  - Gastrooesophageal reflux disease [Unknown]
  - Vomiting [Unknown]
  - Cardiac disorder [Unknown]
  - Gallbladder disorder [Unknown]
  - Hair texture abnormal [Unknown]
